FAERS Safety Report 9723251 (Version 2)
Quarter: 2014Q2

REPORT INFORMATION
  Report Type: Report from Study
  Country: CA (occurrence: CA)
  Receive Date: 20131202
  Receipt Date: 20140630
  Transmission Date: 20141212
  Serious: Yes (Hospitalization)
  Sender: FDA-Public Use
  Company Number: CA-ABBVIE-13P-028-1173318-00

PATIENT
  Sex: Male

DRUGS (2)
  1. HUMIRA [Suspect]
     Indication: CROHN^S DISEASE
     Route: 058
     Dates: start: 20130801
  2. HUMIRA [Suspect]
     Route: 058
     Dates: start: 201311, end: 201312

REACTIONS (2)
  - Anaemia [Unknown]
  - Blood test abnormal [Unknown]
